FAERS Safety Report 26054288 (Version 2)
Quarter: 2025Q4

REPORT INFORMATION
  Report Type: Spontaneous
  Country: US (occurrence: US)
  Receive Date: 20251117
  Receipt Date: 20251128
  Transmission Date: 20260118
  Serious: Yes (Hospitalization, Other)
  Sender: SANOFI AVENTIS
  Company Number: US-SA-2025SA341945

PATIENT
  Age: 79 Year
  Sex: Male

DRUGS (3)
  1. DUPIXENT [Suspect]
     Active Substance: DUPILUMAB
     Indication: Chronic obstructive pulmonary disease
     Dosage: 300 MG, QOW
     Route: 058
     Dates: start: 202509, end: 202509
  2. DUPIXENT [Suspect]
     Active Substance: DUPILUMAB
     Dosage: 300 MG, QOW
     Route: 058
     Dates: start: 20251115
  3. OHTUVAYRE [Concomitant]
     Active Substance: ENSIFENTRINE

REACTIONS (7)
  - Carbon dioxide abnormal [Recovering/Resolving]
  - Cellulitis [Recovering/Resolving]
  - Pneumonia [Recovering/Resolving]
  - Dyspnoea exertional [Recovering/Resolving]
  - Influenza [Unknown]
  - Rhinorrhoea [Unknown]
  - Asthenia [Unknown]

NARRATIVE: CASE EVENT DATE: 20250101
